FAERS Safety Report 8836552 (Version 1)
Quarter: 2012Q4

REPORT INFORMATION
  Report Type: Spontaneous
  Country: US (occurrence: None)
  Receive Date: 20121009
  Receipt Date: 20121009
  Transmission Date: 20130627
  Serious: Yes (Other)
  Sender: FDA-Public Use
  Company Number: 2012P1059858

PATIENT
  Age: 40 Year
  Sex: Male
  Weight: 81.65 kg

DRUGS (3)
  1. MOMETASONE FUROATE [Suspect]
     Indication: EAR PRURITUS
     Route: 001
     Dates: start: 2009, end: 2012
  2. MOMETASONE FUROATE [Suspect]
     Indication: EAR PRURITUS
     Route: 001
     Dates: start: 20120925
  3. MULTIVITAMIN [Concomitant]

REACTIONS (5)
  - Sinusitis [None]
  - Upper respiratory tract infection [None]
  - Ear discomfort [None]
  - Eye irritation [None]
  - Throat irritation [None]
